FAERS Safety Report 13833608 (Version 2)
Quarter: 2017Q3

REPORT INFORMATION
  Report Type: Report from Study
  Country: MX (occurrence: MX)
  Receive Date: 20170804
  Receipt Date: 20170816
  Transmission Date: 20171127
  Serious: Yes (Hospitalization)
  Sender: FDA-Public Use
  Company Number: MX-UCBSA-2017030202

PATIENT
  Age: 86 Year
  Sex: Female

DRUGS (2)
  1. ROTIGOTINE [Suspect]
     Active Substance: ROTIGOTINE
     Dosage: HALF OF THE 4 MG PATCH, ONCE DAILY (QD)
     Route: 062
     Dates: start: 201707, end: 20170713
  2. ROTIGOTINE [Suspect]
     Active Substance: ROTIGOTINE
     Indication: PARKINSON^S DISEASE
     Dosage: 4 MG, ONCE DAILY (QD)
     Route: 062
     Dates: start: 20170711, end: 201707

REACTIONS (8)
  - Pneumonia [Recovered/Resolved]
  - Somnolence [Unknown]
  - Pyrexia [Recovered/Resolved]
  - Dizziness [Recovered/Resolved]
  - Dyskinesia [Unknown]
  - Disorientation [Unknown]
  - Off label use [Unknown]
  - Vomiting [Recovered/Resolved]

NARRATIVE: CASE EVENT DATE: 201707
